FAERS Safety Report 7868607-7 (Version None)
Quarter: 2011Q4

REPORT INFORMATION
  Report Type: 
  Country: None (occurrence: None)
  Receive Date: 20111028
  Receipt Date: 20101215
  Transmission Date: 20120403
  Serious: No
  Sender: FDA-Public Use
  Company Number: US-AMGEN-USASP2010009468

PATIENT
  Age: 69 Year
  Sex: Male

DRUGS (14)
  1. ASPIRIN [Concomitant]
     Dosage: 81 MG, UNK
  2. METHOTREXATE [Concomitant]
     Dosage: 25 MG, UNK
  3. PREDNISONE [Concomitant]
     Dosage: 10 MG, UNK
  4. OMEPRAZOLE [Concomitant]
     Dosage: 40 MG, UNK
  5. FOLIC ACID [Concomitant]
     Dosage: 1 MG, UNK
  6. FLOMAX [Concomitant]
     Dosage: 0.4 MG, UNK
  7. ANTIHISTAMINES [Concomitant]
     Dosage: 25 MG, UNK
  8. PROBIOTICA [Concomitant]
  9. ENBREL [Suspect]
     Indication: PRODUCT USED FOR UNKNOWN INDICATION
  10. LISINOPRIL [Concomitant]
     Dosage: 20 MG, UNK
  11. CRESTOR [Concomitant]
     Dosage: 10 MG, UNK
  12. VITAMIN D [Concomitant]
     Dosage: 1000 UNIT, UNK
  13. TOPROL-XL [Concomitant]
     Dosage: 25 MG, UNK
  14. LUNESTA [Concomitant]
     Dosage: 2 MG, UNK

REACTIONS (2)
  - INJECTION SITE ERYTHEMA [None]
  - INJECTION SITE PRURITUS [None]
